FAERS Safety Report 9365335 (Version 3)
Quarter: 2014Q2

REPORT INFORMATION
  Report Type: Report from Study
  Country: PL (occurrence: PL)
  Receive Date: 20130625
  Receipt Date: 20140401
  Transmission Date: 20141212
  Serious: Yes (Death)
  Sender: FDA-Public Use
  Company Number: PL-ROCHE-1240966

PATIENT
  Age: 75 Year
  Sex: Female
  Weight: 65.06 kg

DRUGS (7)
  1. RANIBIZUMAB [Suspect]
     Indication: RETINAL VEIN OCCLUSION
     Dosage: MOST RECENT DOSE OF RANIBIZUMAB PRIOR TO DEATH: 26/FEB/2013.
     Route: 050
     Dates: start: 20121024, end: 20121024
  2. RANIBIZUMAB [Suspect]
     Dosage: MOST RECENT DOSE OF RANIBIZUMAB PRIOR TO DEATH: 26/FEB/2013.
     Route: 050
     Dates: start: 20121123, end: 20121123
  3. RANIBIZUMAB [Suspect]
     Dosage: MOST RECENT DOSE OF RANIBIZUMAB PRIOR TO DEATH: 26/FEB/2013.
     Route: 050
     Dates: start: 20121228, end: 20121228
  4. RANIBIZUMAB [Suspect]
     Dosage: MOST RECENT DOSE OF RANIBIZUMAB PRIOR TO DEATH: 26/FEB/2013.
     Route: 050
     Dates: start: 20130226, end: 20130226
  5. PROPRANOLOL [Concomitant]
     Route: 065
     Dates: start: 201209
  6. VICEBROL [Concomitant]
     Route: 065
     Dates: start: 201209
  7. NILOGRIN [Concomitant]
     Route: 065
     Dates: start: 201209

REACTIONS (1)
  - Death [Fatal]
